FAERS Safety Report 11190757 (Version 9)
Quarter: 2016Q1

REPORT INFORMATION
  Report Type: Report from Study
  Country: BE (occurrence: BE)
  Receive Date: 20150615
  Receipt Date: 20160317
  Transmission Date: 20160525
  Serious: Yes (Death, Hospitalization, Other)
  Sender: FDA-Public Use
  Company Number: BE-ABBVIE-15P-013-1406422-00

PATIENT
  Sex: Male

DRUGS (8)
  1. DUODOPA [Suspect]
     Active Substance: CARBIDOPA\LEVODOPA
     Dosage: AM=9ML ; CD=4.2ML/HR DURING 16HRS; ED=3.5ML.
     Route: 050
     Dates: start: 20150803, end: 20150820
  2. DUODOPA [Suspect]
     Active Substance: CARBIDOPA\LEVODOPA
     Dosage: AM=7ML; CD=4.7ML/HR DURING 16HRS; ED=3.5ML
     Route: 050
     Dates: start: 20151120
  3. PROLOPA HBS [Concomitant]
     Active Substance: BENSERAZIDE\LEVODOPA
     Indication: PARKINSON^S DISEASE
     Dosage: 100MG/25MG; UNIT DOSE: 2 CAPSULES:AT NIGHT WHEN NEEDED
  4. DUODOPA [Suspect]
     Active Substance: CARBIDOPA\LEVODOPA
     Dosage: AM: 10ML; CD:4.4ML/H FOR 16HRS; ED:3.5ML
     Route: 050
     Dates: start: 20150618
  5. DUODOPA [Suspect]
     Active Substance: CARBIDOPA\LEVODOPA
     Dosage: AM = 10 ML, CD = 4.4 ML/H 16H, ED = 3 ML
     Route: 050
     Dates: start: 20150529, end: 20150618
  6. DUODOPA [Suspect]
     Active Substance: CARBIDOPA\LEVODOPA
     Dosage: AM=7ML ; CD=4.2ML/HR DURING 16HRS; ED= 2ML
     Route: 050
     Dates: start: 20150820, end: 20151120
  7. DUODOPA [Suspect]
     Active Substance: CARBIDOPA\LEVODOPA
     Dosage: DOSE CONTINUOUSLY MONITORED AND ADAPTED
     Route: 050
     Dates: start: 20150402, end: 20150529
  8. DUODOPA [Suspect]
     Active Substance: CARBIDOPA\LEVODOPA
     Indication: PARKINSON^S DISEASE
     Dosage: AM = 5 ML, CD = 3.2 ML/H 16H, ED = 1.5 ML
     Route: 050
     Dates: start: 20150330, end: 20150402

REACTIONS (9)
  - General physical health deterioration [Unknown]
  - Anaemia [Recovered/Resolved]
  - Bedridden [Unknown]
  - Aphasia [Unknown]
  - Muscle rigidity [Unknown]
  - Leukaemia [Unknown]
  - Hypertension [Recovering/Resolving]
  - Abasia [Not Recovered/Not Resolved]
  - Death [Fatal]
